FAERS Safety Report 9649388 (Version 3)
Quarter: 2013Q4

REPORT INFORMATION
  Report Type: Spontaneous
  Country: US (occurrence: US)
  Receive Date: 20131028
  Receipt Date: 20131203
  Transmission Date: 20140711
  Serious: Yes (Hospitalization)
  Sender: FDA-Public Use
  Company Number: US-JNJFOC-20131013275

PATIENT
  Sex: Female
  Weight: 74.84 kg

DRUGS (8)
  1. SANDOZ FENTANYL TRANSDERMAL SYSTEM [Suspect]
     Indication: PAIN
     Route: 062
     Dates: start: 201307, end: 2013
  2. SANDOZ FENTANYL TRANSDERMAL SYSTEM [Suspect]
     Indication: PAIN
     Route: 062
     Dates: start: 2013
  3. LYRICA [Suspect]
     Indication: PAIN
     Route: 048
     Dates: end: 2013
  4. HYDROCODONE [Suspect]
     Indication: PAIN
     Dosage: 10MG/500MG
     Route: 048
     Dates: end: 2013
  5. CELEXA [Concomitant]
     Indication: DEPRESSION
     Route: 048
     Dates: start: 2010
  6. KLONOPIN [Concomitant]
     Indication: DEPRESSION
     Route: 048
     Dates: start: 201308
  7. XANAX [Concomitant]
     Indication: DEPRESSION
     Route: 065
     Dates: start: 2010, end: 201308
  8. BACLOFEN [Concomitant]
     Indication: MUSCLE SPASMS
     Route: 048
     Dates: start: 2010

REACTIONS (10)
  - Gastric ulcer [Not Recovered/Not Resolved]
  - Abdominal discomfort [Not Recovered/Not Resolved]
  - Product adhesion issue [Unknown]
  - Nausea [Recovered/Resolved]
  - Dizziness [Recovered/Resolved]
  - Feeling abnormal [Recovered/Resolved]
  - Body temperature increased [Recovered/Resolved]
  - Abnormal loss of weight [Not Recovered/Not Resolved]
  - Pain [Not Recovered/Not Resolved]
  - Wrong technique in drug usage process [Unknown]
